FAERS Safety Report 19196308 (Version 1)
Quarter: 2021Q2

REPORT INFORMATION
  Report Type: Spontaneous
  Country: CA (occurrence: CA)
  Receive Date: 20210429
  Receipt Date: 20210429
  Transmission Date: 20210717
  Serious: Yes (Hospitalization, Other)
  Sender: FDA-Public Use
  Company Number: CA-GLAXOSMITHKLINE-CACH2021AMR023319

PATIENT
  Age: 42 Year
  Sex: Female
  Weight: 70 kg

DRUGS (5)
  1. ROBAXISAL [Suspect]
     Active Substance: ASPIRIN\METHOCARBAMOL
     Indication: PRODUCT USED FOR UNKNOWN INDICATION
     Dosage: UNK (AS REQUIRED)
     Route: 048
  2. IBUPROFEN. [Suspect]
     Active Substance: IBUPROFEN
     Indication: PRODUCT USED FOR UNKNOWN INDICATION
     Dosage: 400 MG, QID (4 EVERY 1 DAY)
     Route: 048
  3. TYLENOL WITH CODEINE [Concomitant]
     Active Substance: ACETAMINOPHEN\CODEINE PHOSPHATE
     Indication: PRODUCT USED FOR UNKNOWN INDICATION
     Dosage: UNK (AS REQUIRED)
     Route: 048
  4. DARVON?N [Suspect]
     Active Substance: PROPOXYPHENE NAPSYLATE
     Indication: PRODUCT USED FOR UNKNOWN INDICATION
     Dosage: UNK (AS REQUIRED)
     Route: 048
  5. FLEXERIL [Suspect]
     Active Substance: CYCLOBENZAPRINE HYDROCHLORIDE
     Indication: PRODUCT USED FOR UNKNOWN INDICATION
     Dosage: 10 MG, TID (3 EVERY 1 DAY)
     Route: 048

REACTIONS (6)
  - Dyspnoea [Unknown]
  - Tachycardia [Unknown]
  - Urticaria [Unknown]
  - Anaphylactoid reaction [Unknown]
  - Hypovolaemia [Unknown]
  - Drug interaction [Unknown]
